FAERS Safety Report 11563385 (Version 2)
Quarter: 2015Q4

REPORT INFORMATION
  Report Type: Spontaneous
  Country: JP (occurrence: JP)
  Receive Date: 20150928
  Receipt Date: 20151026
  Transmission Date: 20160304
  Serious: Yes (Hospitalization, Other)
  Sender: FDA-Public Use
  Company Number: JP-ASTRAZENECA-2015SE93319

PATIENT
  Sex: Female

DRUGS (11)
  1. DEPAS [Suspect]
     Active Substance: ETIZOLAM
     Route: 048
  2. SANMEL [Concomitant]
     Route: 048
  3. DOGMATYL [Suspect]
     Active Substance: SULPIRIDE
     Route: 048
  4. OMEPRAZON [Suspect]
     Active Substance: OMEPRAZOLE
     Route: 048
  5. LENDORMIN [Concomitant]
     Active Substance: BROTIZOLAM
     Route: 048
  6. MAINTATE [Suspect]
     Active Substance: BISOPROLOL FUMARATE
     Route: 048
  7. SENNOSIDE [Concomitant]
     Active Substance: SENNOSIDES
     Route: 048
  8. CYMBALTA [Concomitant]
     Active Substance: DULOXETINE HYDROCHLORIDE
     Route: 048
  9. MYSLEE [Concomitant]
     Active Substance: ZOLPIDEM TARTRATE
     Route: 048
  10. SELBEX [Concomitant]
     Active Substance: TEPRENONE
     Route: 048
  11. MIRTAZAPINE. [Concomitant]
     Active Substance: MIRTAZAPINE
     Route: 048

REACTIONS (6)
  - Implant site swelling [Unknown]
  - Ventricular tachycardia [Recovering/Resolving]
  - Cardiac failure [Unknown]
  - Ventricular fibrillation [Recovering/Resolving]
  - Coronary artery stenosis [Unknown]
  - Long QT syndrome [Recovering/Resolving]
